FAERS Safety Report 9449387 (Version 1)
Quarter: 2013Q3

REPORT INFORMATION
  Report Type: Not Available
  Country: AU (occurrence: AU)
  Receive Date: 20130809
  Receipt Date: 20130809
  Transmission Date: 20140515
  Serious: Yes (Other)
  Sender: FDA-Public Use
  Company Number: AU-LUPIN PHARMACEUTICALS INC.-2013-01461

PATIENT
  Sex: Female

DRUGS (2)
  1. ESCITALOPRAM [Suspect]
     Indication: MAJOR DEPRESSION
     Route: 065
  2. ESCITALOPRAM [Suspect]
     Indication: ANXIETY

REACTIONS (7)
  - Product substitution issue [Recovered/Resolved]
  - Suicidal ideation [Recovered/Resolved]
  - Malaise [Recovered/Resolved]
  - Feeling abnormal [Recovered/Resolved]
  - Nausea [Recovered/Resolved]
  - Feeling of despair [Recovered/Resolved]
  - Drug ineffective [Recovered/Resolved]
